FAERS Safety Report 10584177 (Version 1)
Quarter: 2014Q4

REPORT INFORMATION
  Report Type: Spontaneous
  Country: BR (occurrence: BR)
  Receive Date: 20141114
  Receipt Date: 20141114
  Transmission Date: 20150529
  Serious: Yes (Other)
  Sender: FDA-Public Use
  Company Number: BR-SA-2014SA154656

PATIENT
  Age: 62 Year
  Sex: Female

DRUGS (7)
  1. TRADJENTA [Concomitant]
     Active Substance: LINAGLIPTIN
     Indication: DIABETES MELLITUS
     Dosage: START DATE: MORE THAN TWO YEARS?STRENGTH: 5MG
  2. LOSARTAN [Concomitant]
     Active Substance: LOSARTAN
     Indication: HYPERTENSION
     Dosage: STRAT DATE: MORE THAN THREE YEARS
  3. LANTUS SOLOSTAR [Suspect]
     Active Substance: INSULIN GLARGINE
     Indication: TYPE 2 DIABETES MELLITUS
     Dosage: DOSE:32 IU IN MORNING AND 20 IU AT NIGHT.
     Route: 065
     Dates: start: 2011
  4. THIOCTACID [Concomitant]
     Active Substance: .ALPHA.-LIPOIC ACID
     Indication: NEUROPATHY PERIPHERAL
     Dosage: STRAT DATE: MORE THAN TWO YEARS
  5. SOMALGIN CARDIO [Concomitant]
     Active Substance: ASPIRIN\DIHYDROXYALUMINUM AMINOACETATE ANHYDROUS\MAGNESIUM CARBONATE
     Indication: BLOOD TRIGLYCERIDES
     Dosage: START DATE: MORE THAN 3 YEARS.
  6. SOLOSTAR [Concomitant]
     Active Substance: DEVICE
     Dates: start: 2011
  7. METFORMIN HYDROCHLORIDE. [Concomitant]
     Active Substance: METFORMIN HYDROCHLORIDE
     Indication: DIABETES MELLITUS
     Dosage: START DATE: MORE THAN TWO YEARS.?STRENGTH: 1G

REACTIONS (2)
  - Drug administration error [Unknown]
  - Arthroscopic surgery [Unknown]

NARRATIVE: CASE EVENT DATE: 20140901
